FAERS Safety Report 5014450-6 (Version None)
Quarter: 2006Q2

REPORT INFORMATION
  Report Type: 
  Country: None (occurrence: None)
  Receive Date: 20060525
  Receipt Date: 20060516
  Transmission Date: 20061013
  Serious: Yes (Hospitalization, Other)
  Sender: FDA-Public Use
  Company Number: HQWYE374717MAY06

PATIENT
  Age: 35 Year
  Sex: Female

DRUGS (1)
  1. RAPAMUNE [Suspect]
     Indication: PROPHYLAXIS AGAINST TRANSPLANT REJECTION
     Dosage: 3 MG 1X PER 1 DAY ORAL
     Route: 048
     Dates: start: 20030908

REACTIONS (1)
  - OVARIAN ADENOMA [None]
